FAERS Safety Report 19651345 (Version 1)
Quarter: 2021Q3

REPORT INFORMATION
  Report Type: Spontaneous
  Country: US (occurrence: US)
  Receive Date: 20210803
  Receipt Date: 20210803
  Transmission Date: 20211014
  Serious: Yes (Other)
  Sender: FDA-Public Use
  Company Number: None

PATIENT
  Age: 44 Year
  Sex: Female
  Weight: 73.8 kg

DRUGS (1)
  1. QBREXZA [Suspect]
     Active Substance: GLYCOPYRRONIUM TOSYLATE
     Indication: HYPERHIDROSIS
     Dosage: ?          QUANTITY:1 2.8 GRAMS SOLUTION;?
     Route: 061
     Dates: start: 20210801, end: 20210801

REACTIONS (5)
  - Headache [None]
  - Somnolence [None]
  - Urinary retention [None]
  - Pain [None]
  - Aptyalism [None]

NARRATIVE: CASE EVENT DATE: 20210802
